FAERS Safety Report 11915385 (Version 2)
Quarter: 2016Q2

REPORT INFORMATION
  Report Type: Spontaneous
  Country: US (occurrence: US)
  Receive Date: 20160114
  Receipt Date: 20160413
  Transmission Date: 20160815
  Serious: No
  Sender: FDA-Public Use
  Company Number: US-ASTRAZENECA-2016SE00599

PATIENT
  Age: 22196 Day
  Sex: Male
  Weight: 90.7 kg

DRUGS (5)
  1. RITALIN [Concomitant]
     Active Substance: METHYLPHENIDATE HYDROCHLORIDE
     Indication: CHANGE IN SUSTAINED ATTENTION
     Dosage: GENERIC; 20 MG TWO TIMES A DAY
     Route: 048
     Dates: start: 2002
  2. SYMBICORT [Suspect]
     Active Substance: BUDESONIDE\FORMOTEROL FUMARATE DIHYDRATE
     Indication: ASTHMA
     Dosage: 160/4.5 AS OF 6-9 MONTHS AGO AS NEEDED
     Route: 055
  3. REQUIP [Concomitant]
     Active Substance: ROPINIROLE HYDROCHLORIDE
     Indication: RESTLESS LEGS SYNDROME
     Dosage: 2 MG ONE HALF PILL AT 7PM AND THE OTHER BEFORE BED
     Route: 048
     Dates: start: 2000
  4. VENTOLIN [Concomitant]
     Active Substance: ALBUTEROL SULFATE
  5. AMBIEN [Concomitant]
     Active Substance: ZOLPIDEM TARTRATE
     Indication: SLEEP DISORDER
     Route: 048
     Dates: start: 2002

REACTIONS (6)
  - Influenza [Unknown]
  - Weight decreased [Unknown]
  - Dizziness [Unknown]
  - Ageusia [Recovered/Resolved]
  - Anosmia [Recovered/Resolved]
  - Upper respiratory tract infection [Unknown]

NARRATIVE: CASE EVENT DATE: 20150310
